FAERS Safety Report 8491435-9 (Version None)
Quarter: 2012Q3

REPORT INFORMATION
  Report Type: 
  Country: None (occurrence: None)
  Receive Date: 20120706
  Receipt Date: 20120624
  Transmission Date: 20120928
  Serious: Yes (Hospitalization)
  Sender: FDA-Public Use
  Company Number: DE-ASTRAZENECA-2012SE45197

PATIENT
  Age: 14 Week
  Sex: Female
  Weight: 3.8 kg

DRUGS (2)
  1. FERROUS SULFATE TAB [Concomitant]
     Dates: start: 20120201, end: 20120624
  2. SYNAGIS [Suspect]
     Indication: ANTIVIRAL PROPHYLAXIS
     Route: 030
     Dates: start: 20120203

REACTIONS (2)
  - RESPIRATORY ARREST [None]
  - RESPIRATORY SYNCYTIAL VIRUS BRONCHITIS [None]
